FAERS Safety Report 9132531 (Version 1)
Quarter: 2013Q1

REPORT INFORMATION
  Report Type: Spontaneous
  Country: FR (occurrence: FR)
  Receive Date: 20130301
  Receipt Date: 20130301
  Transmission Date: 20140127
  Serious: Yes (Hospitalization)
  Sender: FDA-Public Use
  Company Number: FR-BRISTOL-MYERS SQUIBB COMPANY-17403346

PATIENT
  Age: 66 Year
  Sex: Male

DRUGS (10)
  1. COUMADINE [Suspect]
     Indication: ATRIAL FIBRILLATION
     Route: 048
     Dates: start: 201212, end: 20130101
  2. AMLOR [Concomitant]
  3. EUPRESSYL [Concomitant]
  4. CALCIDIA [Concomitant]
  5. TAHOR [Concomitant]
  6. TRIATEC [Concomitant]
  7. STILNOX [Concomitant]
  8. INSULIN [Concomitant]
  9. BACTRIM FORTE [Concomitant]
  10. CORTANCYL [Concomitant]

REACTIONS (3)
  - Anaemia [Recovering/Resolving]
  - International normalised ratio increased [Recovering/Resolving]
  - Chest pain [Recovering/Resolving]
